FAERS Safety Report 11287729 (Version 1)
Quarter: 2015Q3

REPORT INFORMATION
  Report Type: Spontaneous
  Country: US (occurrence: US)
  Receive Date: 20150721
  Receipt Date: 20150721
  Transmission Date: 20151125
  Serious: No
  Sender: FDA-Public Use
  Company Number: US-UNITED THERAPEUTICS-UNT-2015-001208

PATIENT
  Age: 59 Year
  Sex: Female
  Weight: 69.39 kg

DRUGS (4)
  1. REMODULIN [Suspect]
     Active Substance: TREPROSTINIL
     Indication: PULMONARY HYPERTENSION
     Dosage: 0.147 ?G/KG/MIN, CONTINUING
     Route: 058
     Dates: start: 20150126
  2. LETAIRIS [Suspect]
     Active Substance: AMBRISENTAN
     Indication: PULMONARY ARTERIAL HYPERTENSION
     Dosage: 10 MG, QD
     Route: 065
     Dates: start: 20120912
  3. REVATIO [Concomitant]
     Active Substance: SILDENAFIL CITRATE
     Indication: PRODUCT USED FOR UNKNOWN INDICATION
  4. WARFARIN [Concomitant]
     Active Substance: WARFARIN
     Indication: PRODUCT USED FOR UNKNOWN INDICATION

REACTIONS (7)
  - Infusion site erythema [Unknown]
  - Infusion site pain [Unknown]
  - Infusion site warmth [Unknown]
  - Infusion site reaction [Unknown]
  - Device dislocation [Unknown]
  - Infusion site oedema [Unknown]
  - Nausea [Unknown]

NARRATIVE: CASE EVENT DATE: 201501
